FAERS Safety Report 15080446 (Version 3)
Quarter: 2018Q3

REPORT INFORMATION
  Report Type: Spontaneous
  Country: FR (occurrence: FR)
  Receive Date: 20180628
  Receipt Date: 20180901
  Transmission Date: 20181010
  Serious: Yes (Other)
  Sender: FDA-Public Use
  Company Number: FR-SUN PHARMACEUTICAL INDUSTRIES LTD-2018RR-175779

PATIENT
  Age: 84 Year
  Sex: Female

DRUGS (4)
  1. MEPHENESIN [Suspect]
     Active Substance: MEPHENESIN
     Indication: SEDATIVE THERAPY
     Dosage: 1 G, DAILY, 1?2 TABLETS
     Route: 065
  2. ZOLPIDEM [Suspect]
     Active Substance: ZOLPIDEM\ZOLPIDEM TARTRATE
     Indication: SEDATIVE THERAPY
     Dosage: 2 DF, DAILY (AT NIGHT)
     Route: 048
  3. DOXYLAMINE [Suspect]
     Active Substance: DOXYLAMINE
     Indication: SEDATIVE THERAPY
     Dosage: 1?2 TABLETS, DAILY
     Route: 065
  4. PROMETHAZINE [Suspect]
     Active Substance: PROMETHAZINE\PROMETHAZINE HYDROCHLORIDE
     Indication: SEDATIVE THERAPY
     Dosage: 1?2 TABLETS, DAILY
     Route: 065

REACTIONS (1)
  - Drug dependence [Unknown]
